APPROVED DRUG PRODUCT: VIGAFYDE
Active Ingredient: VIGABATRIN
Strength: 100MG/ML
Dosage Form/Route: SOLUTION;ORAL
Application: N217684 | Product #001
Applicant: PYROS PHARMACEUTICALS INC
Approved: Jun 17, 2024 | RLD: Yes | RS: Yes | Type: RX

PATENTS:
Patent 12016857 | Expires: Aug 16, 2039
Patent 12290499 | Expires: Oct 17, 2042